FAERS Safety Report 16786281 (Version 1)
Quarter: 2019Q3

REPORT INFORMATION
  Report Type: Report from Study
  Country: US (occurrence: US)
  Receive Date: 20190909
  Receipt Date: 20190909
  Transmission Date: 20191005
  Serious: No
  Sender: FDA-Public Use
  Company Number: US-THERATECHNOLOGIES, INC.-TH-2019-00130

PATIENT

DRUGS (1)
  1. EGRIFTA [Suspect]
     Active Substance: TESAMORELIN
     Dosage: UNK

REACTIONS (6)
  - Product dose omission [Unknown]
  - Asthenia [Unknown]
  - Night sweats [Unknown]
  - Neuralgia [Unknown]
  - Thinking abnormal [Unknown]
  - Gait disturbance [Unknown]
